FAERS Safety Report 16850853 (Version 1)
Quarter: 2019Q3

REPORT INFORMATION
  Report Type: Spontaneous
  Country: US (occurrence: US)
  Receive Date: 20190925
  Receipt Date: 20190925
  Transmission Date: 20191005
  Serious: No
  Sender: FDA-Public Use
  Company Number: US-THERAPEUTICSMD-2019TMD02088

PATIENT
  Sex: Female

DRUGS (1)
  1. IMVEXXY [Suspect]
     Active Substance: ESTRADIOL

REACTIONS (8)
  - Pain [Unknown]
  - Eructation [Unknown]
  - Decreased appetite [Unknown]
  - Dyspnoea [Unknown]
  - Abdominal distension [Unknown]
  - Product dose omission [Unknown]
  - Malaise [Unknown]
  - Gallbladder disorder [Unknown]
